FAERS Safety Report 10396462 (Version 2)
Quarter: 2014Q3

REPORT INFORMATION
  Report Type: Spontaneous
  Country: US (occurrence: None)
  Receive Date: 20130815
  Receipt Date: 20140815
  Transmission Date: 20150326
  Serious: Yes (Other)
  Sender: FDA-Public Use
  Company Number: ADR-2013-00705

PATIENT
  Sex: Female

DRUGS (2)
  1. BACLOFEN INTRATHECAL 200 MCG/ML [Suspect]
     Active Substance: BACLOFEN
     Indication: MUSCLE SPASTICITY
  2. MORPHINE INTRATHECAL [Concomitant]

REACTIONS (7)
  - Therapeutic response decreased [None]
  - Hypertonic bladder [None]
  - Overdose [None]
  - Drug withdrawal syndrome [None]
  - Drug prescribing error [None]
  - Urinary tract infection [None]
  - Muscle spasticity [None]
